FAERS Safety Report 6082422-9 (Version None)
Quarter: 2009Q1

REPORT INFORMATION
  Report Type: 
  Country: None (occurrence: None)
  Receive Date: 20090218
  Receipt Date: 20081218
  Transmission Date: 20090719
  Serious: Yes (Disabling)
  Sender: FDA-Public Use
  Company Number: IL-MERCK-0810ISR00011

PATIENT
  Sex: Male

DRUGS (1)
  1. PROPECIA [Suspect]
     Indication: ALOPECIA
     Route: 048
     Dates: end: 20071001

REACTIONS (4)
  - DISTURBANCE IN ATTENTION [None]
  - LIBIDO DECREASED [None]
  - MALAISE [None]
  - SLEEP DISORDER [None]
